FAERS Safety Report 4641065-1 (Version None)
Quarter: 2005Q2

REPORT INFORMATION
  Report Type: 
  Country: None (occurrence: None)
  Receive Date: 20050419
  Receipt Date: 20050419
  Transmission Date: 20051028
  Serious: Yes (Hospitalization)
  Sender: FDA-Public Use
  Company Number: None

PATIENT
  Age: 60 Year
  Sex: Male
  Weight: 59 kg

DRUGS (3)
  1. PHENYTOIN [Suspect]
     Indication: CONVULSION
     Dosage: 300MG, 300MG QP, ORAL
     Route: 048
  2. TOPIRAMATE [Concomitant]
  3. MULTI-VITAMIN [Concomitant]

REACTIONS (1)
  - DRUG TOXICITY [None]
